FAERS Safety Report 17141007 (Version 3)
Quarter: 2019Q4

REPORT INFORMATION
  Report Type: Spontaneous
  Country: US (occurrence: US)
  Receive Date: 20191211
  Receipt Date: 20191226
  Transmission Date: 20200122
  Serious: Yes (Other)
  Sender: FDA-Public Use
  Company Number: US-PFIZER INC-2019532794

PATIENT
  Age: 75 Year
  Sex: Female
  Weight: 81.65 kg

DRUGS (6)
  1. TRAZODONE [Concomitant]
     Active Substance: TRAZODONE HYDROCHLORIDE
     Indication: SLEEP DISORDER
     Dosage: 50 MG, 1X/DAY (EVERY NIGHT)
     Route: 048
     Dates: start: 20191115
  2. PRILOSEC [Concomitant]
     Active Substance: OMEPRAZOLE MAGNESIUM
     Indication: ANTICOAGULANT THERAPY
     Dosage: UNK
     Dates: start: 20191115
  3. NAPROXEN. [Concomitant]
     Active Substance: NAPROXEN
     Indication: PAIN
     Dosage: 500 MG, 2X/DAY
     Route: 048
     Dates: start: 20191115
  4. DOFETILIDE. [Suspect]
     Active Substance: DOFETILIDE
     Indication: ATRIAL FIBRILLATION
     Dosage: 500 UG, UNK
  5. DOFETILIDE. [Suspect]
     Active Substance: DOFETILIDE
     Indication: ARRHYTHMIA
     Dosage: 250 UG, 2X/DAY
     Route: 048
     Dates: start: 20191008
  6. WARFARIN [Concomitant]
     Active Substance: WARFARIN
     Indication: ANTICOAGULANT THERAPY
     Dosage: UNK

REACTIONS (19)
  - Nasopharyngitis [Unknown]
  - Back pain [Not Recovered/Not Resolved]
  - Muscle spasms [Unknown]
  - Bradycardia [Unknown]
  - Pain in extremity [Not Recovered/Not Resolved]
  - Gait disturbance [Not Recovered/Not Resolved]
  - Malaise [Unknown]
  - Asthma [Unknown]
  - Fatigue [Unknown]
  - Muscle twitching [Recovering/Resolving]
  - Myalgia [Unknown]
  - Insomnia [Not Recovered/Not Resolved]
  - Peripheral swelling [Unknown]
  - Asthenia [Unknown]
  - Influenza like illness [Not Recovered/Not Resolved]
  - Cough [Unknown]
  - Condition aggravated [Unknown]
  - Blood cholesterol abnormal [Unknown]
  - Feeling abnormal [Unknown]

NARRATIVE: CASE EVENT DATE: 201910
